FAERS Safety Report 4474435-5 (Version None)
Quarter: 2004Q4

REPORT INFORMATION
  Report Type: 
  Country: None (occurrence: None)
  Receive Date: 20041014
  Receipt Date: 20040830
  Transmission Date: 20050328
  Serious: Yes (Disabling)
  Sender: FDA-Public Use
  Company Number: JP-MERCK-0409USA00284

PATIENT
  Age: 93 Year
  Sex: Male

DRUGS (10)
  1. MODACIN [Concomitant]
     Indication: PNEUMONIA BACTERIAL
     Route: 042
     Dates: start: 20040710, end: 20040712
  2. PRIMAXIN [Suspect]
     Indication: PNEUMONIA BACTERIAL
     Route: 042
     Dates: start: 20040713, end: 20040715
  3. CLINDAMYCIN PHOSPHATE [Concomitant]
     Indication: PNEUMONIA BACTERIAL
     Route: 042
     Dates: start: 20040710, end: 20040723
  4. SOLU-MEDROL [Concomitant]
     Indication: PROPHYLAXIS
     Route: 042
     Dates: start: 20040710, end: 20040711
  5. SOLU-MEDROL [Concomitant]
     Route: 042
     Dates: start: 20040713, end: 20040715
  6. SOLU-MEDROL [Concomitant]
     Route: 042
     Dates: start: 20040722, end: 20040724
  7. MINOCYCLINE HYDROCHLORIDE [Concomitant]
     Indication: PNEUMONIA BACTERIAL
     Route: 042
     Dates: start: 20040723, end: 20040804
  8. DIPRIVAN [Concomitant]
     Indication: SEDATIVE THERAPY
     Route: 042
     Dates: start: 20040713, end: 20040101
  9. ELASPOL [Concomitant]
     Indication: ACUTE RESPIRATORY DISTRESS SYNDROME
     Route: 042
     Dates: start: 20040722, end: 20040804
  10. VANCOMYCIN HYDROCHLORIDE [Concomitant]
     Indication: PNEUMONIA BACTERIAL
     Route: 042
     Dates: start: 20040716, end: 20040730

REACTIONS (3)
  - ANOXIC ENCEPHALOPATHY [None]
  - DEPRESSED LEVEL OF CONSCIOUSNESS [None]
  - DYSKINESIA [None]
